FAERS Safety Report 25045818 (Version 1)
Quarter: 2025Q1

REPORT INFORMATION
  Report Type: Report from Study
  Country: US (occurrence: US)
  Receive Date: 20250306
  Receipt Date: 20250306
  Transmission Date: 20250408
  Serious: Yes (Hospitalization, Other)
  Sender: UCB
  Company Number: US-UCBSA-2025012624

PATIENT
  Age: 71 Year
  Sex: Female

DRUGS (1)
  1. LACOSAMIDE [Suspect]
     Active Substance: LACOSAMIDE
     Indication: Seizure
     Dosage: 200 MILLIGRAM, 2X/DAY (BID)

REACTIONS (6)
  - Head injury [Unknown]
  - Myocardial infarction [Unknown]
  - Influenza [Unknown]
  - Stent placement [Unknown]
  - Hand fracture [Unknown]
  - Amnesia [Unknown]

NARRATIVE: CASE EVENT DATE: 20241001
